FAERS Safety Report 21778369 (Version 1)
Quarter: 2022Q4

REPORT INFORMATION
  Report Type: Spontaneous
  Country: US (occurrence: US)
  Receive Date: 20221226
  Receipt Date: 20221226
  Transmission Date: 20230112
  Serious: No
  Sender: FDA-Public Use
  Company Number: US-MIGRATION_PFIZER-2022BHV003044

PATIENT

DRUGS (2)
  1. NURTEC ODT [Suspect]
     Active Substance: RIMEGEPANT SULFATE
     Indication: Migraine
     Dosage: PER PATIENT, I TAKE NURTEC FOR WHEN I FEEL LIKE I AM GETTING A MIGRAINE.
     Route: 065
  2. ADVIL DUAL ACTION WITH ACETAMINOPHEN [Concomitant]
     Active Substance: ACETAMINOPHEN\IBUPROFEN
     Indication: Product used for unknown indication
     Route: 065

REACTIONS (1)
  - Adverse event [Unknown]
